FAERS Safety Report 4944122-5 (Version None)
Quarter: 2006Q1

REPORT INFORMATION
  Report Type: 
  Country: None (occurrence: None)
  Receive Date: 20060309
  Receipt Date: 20060223
  Transmission Date: 20060701
  Serious: Yes (Other)
  Sender: FDA-Public Use
  Company Number: 2006SI001591

PATIENT
  Age: 17 Year
  Sex: Male
  Weight: 104.3273 kg

DRUGS (3)
  1. EXTENDED PHENYTOIN SODIUM [Suspect]
     Indication: CONVULSION
     Dosage: 300 MG; QD; ORAL
     Route: 048
     Dates: start: 20050901
  2. PIRBUTEROL ACETATE [Concomitant]
  3. FLUTICASONE PROPIONATE [Concomitant]

REACTIONS (1)
  - CONVULSION [None]
